FAERS Safety Report 8699055 (Version 2)
Quarter: 2012Q4

REPORT INFORMATION
  Report Type: Report from Study
  Country: US (occurrence: None)
  Receive Date: 20120718
  Receipt Date: 20120913
  Transmission Date: 20130627
  Serious: Yes (Hospitalization)
  Sender: FDA-Public Use
  Company Number: 2010005402

PATIENT
  Age: 56 Year
  Sex: Female

DRUGS (1)
  1. TARCEVA [Suspect]
     Indication: LUNG CARCINOMA CELL TYPE UNSPECIFIED STAGE 0
     Dosage: UID/QD
     Route: 048
     Dates: start: 20100820

REACTIONS (3)
  - Rib fracture [None]
  - Rash [None]
  - Skin discolouration [None]
